FAERS Safety Report 23203763 (Version 1)
Quarter: 2023Q4

REPORT INFORMATION
  Report Type: Other
  Country: FR (occurrence: None)
  Receive Date: 20231120
  Receipt Date: 20231120
  Transmission Date: 20240110
  Serious: Yes (Death, Other)
  Sender: FDA-Public Use
  Company Number: FR-ROCHE-3458884

PATIENT

DRUGS (19)
  1. TOCILIZUMAB [Suspect]
     Active Substance: TOCILIZUMAB
     Indication: Rheumatoid arthritis
     Dosage: 4-8 MG/KG AT STEP 0
     Route: 042
  2. TOCILIZUMAB [Suspect]
     Active Substance: TOCILIZUMAB
     Dosage: 4-8 MG/KG AT STEP 1
     Route: 042
  3. TOCILIZUMAB [Suspect]
     Active Substance: TOCILIZUMAB
     Dosage: 4-8 MG/KG AT STEP 2
     Route: 042
  4. TOCILIZUMAB [Suspect]
     Active Substance: TOCILIZUMAB
     Dosage: 4-8 MG/KG AT STEP 3
     Route: 042
  5. TOCILIZUMAB [Suspect]
     Active Substance: TOCILIZUMAB
     Indication: Rheumatoid arthritis
     Dosage: AT STEP 0
     Route: 058
  6. TOCILIZUMAB [Suspect]
     Active Substance: TOCILIZUMAB
     Dosage: AT STEP 1
     Route: 058
  7. TOCILIZUMAB [Suspect]
     Active Substance: TOCILIZUMAB
     Dosage: AT STEP 2
     Route: 058
  8. TOCILIZUMAB [Suspect]
     Active Substance: TOCILIZUMAB
     Dosage: AT STEP 3
     Route: 058
  9. ABATACEPT [Suspect]
     Active Substance: ABATACEPT
     Indication: Rheumatoid arthritis
     Dosage: 500-1000 MG  AT STEP 0
     Route: 042
  10. ABATACEPT [Suspect]
     Active Substance: ABATACEPT
     Dosage: 500-1000 MG  AT STEP 1
     Route: 042
  11. ABATACEPT [Suspect]
     Active Substance: ABATACEPT
     Dosage: 500-1000 MG  AT STEP 2
     Route: 042
  12. ABATACEPT [Suspect]
     Active Substance: ABATACEPT
     Dosage: 500-1000 MG  AT STEP 3
     Route: 042
  13. ABATACEPT [Suspect]
     Active Substance: ABATACEPT
     Dosage: STEP 0
     Route: 058
  14. ABATACEPT [Suspect]
     Active Substance: ABATACEPT
     Dosage: STEP 1
     Route: 058
  15. ABATACEPT [Suspect]
     Active Substance: ABATACEPT
     Dosage: STEP 2
     Route: 058
  16. ABATACEPT [Suspect]
     Active Substance: ABATACEPT
     Dosage: STEP 3
     Route: 058
  17. PREDNISONE [Suspect]
     Active Substance: PREDNISONE
     Indication: Rheumatoid arthritis
     Dosage: {/= 5 MG
     Route: 065
  18. METHOTREXATE [Suspect]
     Active Substance: METHOTREXATE
     Indication: Rheumatoid arthritis
     Route: 065
  19. LEFLUNOMIDE [Suspect]
     Active Substance: LEFLUNOMIDE
     Indication: Rheumatoid arthritis
     Route: 065

REACTIONS (6)
  - Pneumonia [Fatal]
  - Cardiovascular disorder [Fatal]
  - Infection [Unknown]
  - Neoplasm malignant [Unknown]
  - White blood cell count decreased [Unknown]
  - Drug ineffective [Unknown]
